FAERS Safety Report 6996653-4 (Version None)
Quarter: 2010Q3

REPORT INFORMATION
  Report Type: 
  Country: None (occurrence: None)
  Receive Date: 20100918
  Receipt Date: 20090522
  Transmission Date: 20110219
  Serious: No
  Sender: FDA-Public Use
  Company Number: US-WYE-H09464009

PATIENT
  Age: 43 Year
  Sex: Female
  Weight: 88.53 kg

DRUGS (2)
  1. ALAVERT [Suspect]
     Indication: HYPERSENSITIVITY
     Route: 048
     Dates: start: 20090521, end: 20090521
  2. LISINOPRIL [Concomitant]

REACTIONS (1)
  - PHARYNGEAL HYPOAESTHESIA [None]
